FAERS Safety Report 14946453 (Version 1)
Quarter: 2018Q2

REPORT INFORMATION
  Report Type: Spontaneous
  Country: US (occurrence: US)
  Receive Date: 20180529
  Receipt Date: 20180529
  Transmission Date: 20180711
  Serious: No
  Sender: FDA-Public Use
  Company Number: US-BRAINTREE LABORATORIES-180125

PATIENT
  Age: 51 Year
  Sex: Female
  Weight: 62.14 kg

DRUGS (1)
  1. NULYTELY [Suspect]
     Active Substance: POLYETHYLENE GLYCOL 3350\POTASSIUM CHLORIDE\SODIUM BICARBONATE\SODIUM CHLORIDE
     Indication: COLONOSCOPY
     Route: 048
     Dates: start: 20180228, end: 20180228

REACTIONS (5)
  - Musculoskeletal stiffness [None]
  - Hypoaesthesia oral [None]
  - Swollen tongue [None]
  - Lip swelling [None]
  - Paraesthesia [None]

NARRATIVE: CASE EVENT DATE: 20180228
